FAERS Safety Report 14970873 (Version 1)
Quarter: 2018Q2

REPORT INFORMATION
  Report Type: Report from Study
  Country: US (occurrence: US)
  Receive Date: 20180604
  Receipt Date: 20180604
  Transmission Date: 20180711
  Serious: Yes (Other)
  Sender: FDA-Public Use
  Company Number: US-MYLANLABS-2018M1036904

PATIENT

DRUGS (3)
  1. DASATINIB. [Suspect]
     Active Substance: DASATINIB
     Indication: CENTRAL NERVOUS SYSTEM NEOPLASM
     Dosage: FOR 21 DAYS, FOLLOWED BY 7 DAYS REST, IN REPEATING 28 DAY CYCLES
     Route: 048
  2. LENALIDOMIDE [Suspect]
     Active Substance: LENALIDOMIDE
     Indication: CENTRAL NERVOUS SYSTEM NEOPLASM
     Dosage: FOR 21 DAYS, FOLLOWED BY 7 DAYS REST, IN REPEATING 28 DAY CYCLES
     Route: 048
  3. TEMOZOLOMIDE. [Suspect]
     Active Substance: TEMOZOLOMIDE
     Indication: CENTRAL NERVOUS SYSTEM NEOPLASM
     Dosage: FOR 21 DAYS, FOLLOWED BY 7 DAYS REST, IN REPEATING 28 DAY CYCLES
     Route: 048

REACTIONS (1)
  - Hypokalaemia [Recovered/Resolved]
